FAERS Safety Report 4565552-X (Version None)
Quarter: 2005Q1

REPORT INFORMATION
  Report Type: 
  Country: None (occurrence: None)
  Receive Date: 20050125
  Receipt Date: 20050125
  Transmission Date: 20050727
  Serious: Yes (Life-Threatening, Hospitalization, Disabling)
  Sender: FDA-Public Use
  Company Number: None

PATIENT
  Sex: Male
  Weight: 75.7507 kg

DRUGS (1)
  1. TAMBOCOR [Suspect]
     Indication: VENTRICULAR TACHYCARDIA
     Dosage: DAILY
     Dates: start: 19851020, end: 19870516

REACTIONS (2)
  - ATRIAL FIBRILLATION [None]
  - HEART RATE DECREASED [None]
